FAERS Safety Report 23673793 (Version 1)
Quarter: 2024Q1

REPORT INFORMATION
  Report Type: Spontaneous
  Country: US (occurrence: None)
  Receive Date: 20240326
  Receipt Date: 20240326
  Transmission Date: 20240410
  Serious: Yes (Hospitalization)
  Sender: FDA-Public Use
  Company Number: None

PATIENT
  Age: 49 Year
  Sex: Female

DRUGS (2)
  1. ENBREL [Suspect]
     Active Substance: ETANERCEPT
     Dosage: 50MG  EVERY 7 DAYS UNDER THE SKIN?
     Route: 042
     Dates: start: 201611
  2. AJOBY PF AUTO INJ [Concomitant]

REACTIONS (7)
  - Fall [None]
  - Cerebrovascular accident [None]
  - Face injury [None]
  - Intentional dose omission [None]
  - Condition aggravated [None]
  - Ankylosing spondylitis [None]
  - Jaw fracture [None]

NARRATIVE: CASE EVENT DATE: 20240209
